FAERS Safety Report 9100173 (Version 4)
Quarter: 2013Q4

REPORT INFORMATION
  Report Type: Spontaneous
  Country: US (occurrence: US)
  Receive Date: 20130215
  Receipt Date: 20131008
  Transmission Date: 20140711
  Serious: No
  Sender: FDA-Public Use
  Company Number: US-PFIZER INC-2013057753

PATIENT
  Age: 58 Year
  Sex: Male
  Weight: 131 kg

DRUGS (5)
  1. LYRICA [Suspect]
     Indication: FIBROMYALGIA
     Dosage: 150 MG, DAILY
     Dates: start: 2013
  2. LYRICA [Suspect]
     Indication: NEUROPATHY PERIPHERAL
     Dosage: 300 MG, 2X/DAY
     Dates: start: 2013
  3. TOPAMAX [Suspect]
     Indication: NEUROPATHY PERIPHERAL
     Dosage: UNK
     Dates: start: 2013, end: 2013
  4. COUMADIN [Concomitant]
     Indication: DEEP VEIN THROMBOSIS
     Dosage: UNK
  5. CYMBALTA [Concomitant]
     Dosage: 90 MG, 1X/DAY

REACTIONS (10)
  - Off label use [Unknown]
  - Oedema peripheral [Unknown]
  - Drug ineffective [Unknown]
  - Pain [Unknown]
  - Limb discomfort [Unknown]
  - Hypoaesthesia [Unknown]
  - Paraesthesia [Unknown]
  - Neuropathy peripheral [Unknown]
  - Weight increased [Unknown]
  - Poor peripheral circulation [Unknown]
